FAERS Safety Report 14672085 (Version 2)
Quarter: 2018Q1

REPORT INFORMATION
  Report Type: Spontaneous
  Country: ES (occurrence: ES)
  Receive Date: 20180323
  Receipt Date: 20180328
  Transmission Date: 20180509
  Serious: Yes (Death)
  Sender: FDA-Public Use
  Company Number: ES-B.I. PHARMACEUTICALS,INC./RIDGEFIELD-2018-BI-016129

PATIENT
  Age: 75 Year
  Sex: Male
  Weight: 65 kg

DRUGS (9)
  1. PRAXBIND [Suspect]
     Active Substance: IDARUCIZUMAB
     Indication: CATHETER SITE HAEMORRHAGE
  2. PRAXBIND [Suspect]
     Active Substance: IDARUCIZUMAB
     Indication: COAGULOPATHY
  3. PRAXBIND [Suspect]
     Active Substance: IDARUCIZUMAB
     Indication: INTRA-ABDOMINAL HAEMATOMA
  4. CLOPIDOGREL [Concomitant]
     Active Substance: CLOPIDOGREL BISULFATE
     Indication: PRODUCT USED FOR UNKNOWN INDICATION
     Route: 065
  5. PRAXBIND [Suspect]
     Active Substance: IDARUCIZUMAB
     Indication: HAEMATURIA
     Route: 065
     Dates: start: 201803, end: 201803
  6. PRAXBIND [Suspect]
     Active Substance: IDARUCIZUMAB
     Indication: VESSEL PUNCTURE SITE HAEMORRHAGE
  7. PRAXBIND [Suspect]
     Active Substance: IDARUCIZUMAB
     Indication: SEPSIS
  8. ADIRO [Concomitant]
     Active Substance: ASPIRIN
     Indication: PRODUCT USED FOR UNKNOWN INDICATION
     Route: 065
  9. PRADAXA [Concomitant]
     Active Substance: DABIGATRAN ETEXILATE MESYLATE
     Indication: ATRIAL FIBRILLATION
     Route: 065
     Dates: start: 201802, end: 20180313

REACTIONS (1)
  - Death [Fatal]

NARRATIVE: CASE EVENT DATE: 20180314
